FAERS Safety Report 14423610 (Version 2)
Quarter: 2018Q1

REPORT INFORMATION
  Report Type: Spontaneous
  Country: US (occurrence: US)
  Receive Date: 20180123
  Receipt Date: 20180207
  Transmission Date: 20180509
  Serious: Yes (Other)
  Sender: FDA-Public Use
  Company Number: US-PFIZER INC-2018029990

PATIENT
  Sex: Male

DRUGS (2)
  1. GENOTROPIN [Suspect]
     Active Substance: SOMATROPIN
     Indication: HORMONE THERAPY
     Dosage: 0.25 MG/KG, WEEKLY
     Dates: start: 201408, end: 201410
  2. GENOTROPIN [Suspect]
     Active Substance: SOMATROPIN
     Dosage: 0.2 MG/KG, WEEKLY
     Dates: start: 201708

REACTIONS (2)
  - Idiopathic intracranial hypertension [Recovered/Resolved]
  - Hypoglycaemia [Unknown]
